FAERS Safety Report 8600797-0 (Version None)
Quarter: 2012Q3

REPORT INFORMATION
  Report Type: 
  Country: None (occurrence: None)
  Receive Date: 20120817
  Receipt Date: 20120808
  Transmission Date: 20120928
  Serious: No
  Sender: FDA-Public Use
  Company Number: US-BAYER-2012-081853

PATIENT
  Age: 86 Year
  Sex: Female
  Weight: 37 kg

DRUGS (1)
  1. ALEVE (CAPLET) [Suspect]
     Indication: ANALGESIC THERAPY
     Dosage: UNK DF, UNK
     Route: 048
     Dates: start: 20120725, end: 20120808

REACTIONS (1)
  - URTICARIA [None]
